FAERS Safety Report 7966578-6 (Version None)
Quarter: 2011Q4

REPORT INFORMATION
  Report Type: 
  Country: None (occurrence: None)
  Receive Date: 20111209
  Receipt Date: 20111207
  Transmission Date: 20120403
  Serious: Yes (Other)
  Sender: FDA-Public Use
  Company Number: DE-BRISTOL-MYERS SQUIBB COMPANY-16215121

PATIENT
  Age: 49 Year
  Sex: Female

DRUGS (4)
  1. CARMUSTINE [Suspect]
     Indication: NON-HODGKIN'S LYMPHOMA
     Dates: start: 20111102, end: 20111101
  2. EMEND [Concomitant]
  3. DEXAMETHASONE [Concomitant]
  4. GRANISETRON  HCL [Concomitant]

REACTIONS (1)
  - ANAPHYLACTIC REACTION [None]
